FAERS Safety Report 13534948 (Version 1)
Quarter: 2017Q2

REPORT INFORMATION
  Report Type: Spontaneous
  Country: US (occurrence: US)
  Receive Date: 20170510
  Receipt Date: 20170510
  Transmission Date: 20170830
  Serious: Yes (Hospitalization)
  Sender: FDA-Public Use
  Company Number: None

PATIENT
  Age: 64 Year
  Sex: Female
  Weight: 103 kg

DRUGS (25)
  1. NUVIGIL [Concomitant]
     Active Substance: ARMODAFINIL
  2. EPIPEN [Concomitant]
     Active Substance: EPINEPHRINE
  3. LEVOTHYROXIN [Concomitant]
     Active Substance: LEVOTHYROXINE
  4. METOPROLOL EX XL [Concomitant]
  5. FLONASE SPRAY [Concomitant]
  6. PLAQUNIL [Concomitant]
  7. NITROSTAT [Concomitant]
     Active Substance: NITROGLYCERIN
  8. FOLIC ACID. [Concomitant]
     Active Substance: FOLIC ACID
  9. PATANOL [Concomitant]
     Active Substance: OLOPATADINE HYDROCHLORIDE
  10. VITAMIN E [Concomitant]
     Active Substance: .ALPHA.-TOCOPHEROL
  11. BUMEX [Concomitant]
     Active Substance: BUMETANIDE
  12. LOSARTAN POTASSIUM. [Concomitant]
     Active Substance: LOSARTAN POTASSIUM
  13. METHOTRAXTE [Concomitant]
  14. RITATRIPTAN [Concomitant]
  15. TRAZODONE [Concomitant]
     Active Substance: TRAZODONE HYDROCHLORIDE
  16. VITAMIN C [Concomitant]
     Active Substance: ASCORBIC ACID
  17. LEVOFLOXACIN. [Suspect]
     Active Substance: LEVOFLOXACIN
     Indication: BRONCHITIS
     Dosage: ?          QUANTITY:1 TABLET(S);?
     Route: 048
  18. ASPIRIN. [Concomitant]
     Active Substance: ASPIRIN
  19. DICLOFENAC SODIUM. [Concomitant]
     Active Substance: DICLOFENAC SODIUM
  20. MELOXICAM. [Concomitant]
     Active Substance: MELOXICAM
  21. NAFTIN CREAM [Concomitant]
  22. CINNAMON. [Concomitant]
     Active Substance: CINNAMON
  23. CYMBALTA [Concomitant]
     Active Substance: DULOXETINE HYDROCHLORIDE
  24. KLOR-CON M20 [Concomitant]
     Active Substance: POTASSIUM CHLORIDE
  25. TOPRIMATE [Concomitant]
     Active Substance: TOPIRAMATE

REACTIONS (8)
  - Cough [None]
  - Wheezing [None]
  - Dyspnoea [None]
  - Ear swelling [None]
  - Abasia [None]
  - Hypersensitivity [None]
  - Muscle tightness [None]
  - Dysstasia [None]

NARRATIVE: CASE EVENT DATE: 20170509
